FAERS Safety Report 9531939 (Version 1)
Quarter: 2013Q3

REPORT INFORMATION
  Report Type: Spontaneous
  Country: US (occurrence: US)
  Receive Date: 20130918
  Receipt Date: 20130918
  Transmission Date: 20140515
  Serious: No
  Sender: FDA-Public Use
  Company Number: US-PFIZER INC-2013265285

PATIENT
  Age: 68 Year
  Sex: Female

DRUGS (3)
  1. INLYTA [Suspect]
     Indication: RENAL NEOPLASM
     Dosage: 5 MG, UNK
     Dates: start: 20130109
  2. CITALOPRAM HYDROBROMIDE [Concomitant]
     Dosage: UNK
  3. ONDANSETRON HYDROCHLORIDE [Concomitant]
     Dosage: UNK

REACTIONS (3)
  - Abdominal pain upper [Unknown]
  - Decreased appetite [Unknown]
  - Diarrhoea [Unknown]
